FAERS Safety Report 7495069-4 (Version None)
Quarter: 2011Q2

REPORT INFORMATION
  Report Type: 
  Country: None (occurrence: None)
  Receive Date: 20110520
  Receipt Date: 20110506
  Transmission Date: 20111010
  Serious: Yes (Life-Threatening, Hospitalization, Disabling)
  Sender: FDA-Public Use
  Company Number: GB-WATSON-2011-06725

PATIENT
  Age: 87 Year
  Sex: Male

DRUGS (13)
  1. SIMVASTATIN [Suspect]
     Indication: MYOCARDIAL ISCHAEMIA
  2. CITALOPRAM HYDROBROMIDE [Suspect]
     Indication: DEPRESSION
     Dosage: 10 MG, DAILY
     Route: 048
  3. RIFAMPICIN [Concomitant]
     Indication: TUBERCULOSIS
  4. SIMVASTATIN [Suspect]
     Indication: CARDIAC FAILURE
     Dosage: 40 MG, DAILY
     Route: 048
  5. RAMIPRIL [Concomitant]
     Indication: CARDIAC FAILURE
     Dosage: 2.5 MG, DAILY
     Route: 048
  6. SENNA                              /00142201/ [Concomitant]
     Indication: CONSTIPATION
     Dosage: 7.5 MG, UNK
     Route: 048
  7. BISOPROLOL FUMARATE [Concomitant]
     Indication: CARDIAC FAILURE
     Dosage: 5 MG, DAILY
     Route: 048
  8. FORTISIP [Concomitant]
     Indication: NUTRITIONAL SUPPORT
     Dosage: 1 DF, TID
  9. OMEPRAZOLE [Suspect]
     Dosage: 20 MG, DAILY
     Route: 048
  10. ISONIAZID [Concomitant]
     Indication: TUBERCULOSIS
  11. FRUSEMIDE                          /00032601/ [Concomitant]
     Indication: CARDIAC FAILURE
     Dosage: 40 MG, DAILY
     Route: 048
  12. HYDROXOCOBALAMIN [Concomitant]
     Indication: VITAMIN B12 DEFICIENCY
     Dosage: 1 MG, UNK
  13. PYRAZINAMIDE [Concomitant]
     Indication: TUBERCULOSIS

REACTIONS (4)
  - WEIGHT DECREASED [None]
  - PULMONARY FIBROSIS [None]
  - DYSPNOEA [None]
  - COUGH [None]
